FAERS Safety Report 9926054 (Version 3)
Quarter: 2014Q2

REPORT INFORMATION
  Report Type: Spontaneous
  Country: AU (occurrence: AU)
  Receive Date: 20140226
  Receipt Date: 20140522
  Transmission Date: 20141212
  Serious: Yes (Death, Life-Threatening, Hospitalization, Disabling, Other)
  Sender: FDA-Public Use
  Company Number: AU-009507513-1402AUS011051

PATIENT
  Age: 72 Year
  Sex: Female

DRUGS (21)
  1. JANUMET 50 MG/1000 MG [Suspect]
     Indication: DIABETES MELLITUS
     Dosage: 1 DF, BID
     Route: 048
     Dates: start: 20081028, end: 20140201
  2. NEXIUM [Concomitant]
     Dosage: UNK
  3. PANADOL [Concomitant]
     Dosage: UNK
  4. ATORVASTATIN [Concomitant]
     Dosage: UNK
  5. TENORMIN [Concomitant]
     Dosage: 1 DF, QD
  6. ZANIDIP [Concomitant]
     Dosage: UNK
  7. ALEPAM [Concomitant]
     Indication: SLEEP DISORDER
     Dosage: 1/2 TABLET BEFORE BED PRN
     Route: 048
     Dates: end: 20140202
  8. CARTIA (DILTIAZEM HYDROCHLORIDE) [Concomitant]
     Indication: CEREBROVASCULAR ACCIDENT PROPHYLAXIS
     Dosage: UNK
     Route: 048
     Dates: end: 20140202
  9. LIPITOR [Concomitant]
     Indication: DYSLIPIDAEMIA
     Dosage: 1 DF, QD
     Route: 048
     Dates: end: 20140202
  10. MACRODANTIN [Concomitant]
     Indication: PROPHYLAXIS URINARY TRACT INFECTION
     Dosage: 1 DF, QD
     Route: 048
     Dates: start: 20110803, end: 20140202
  11. NATRILIX [Concomitant]
     Indication: HYPERTENSION
     Dosage: SLOW RELEASE
     Route: 048
     Dates: start: 20090804, end: 20140202
  12. NEXIUM [Concomitant]
     Indication: GASTROOESOPHAGEAL REFLUX DISEASE
     Dosage: 1 DF, QD
     Route: 048
     Dates: start: 20050908, end: 20140202
  13. PANADOL OSTEO [Concomitant]
     Indication: ARTHRITIS
     Dosage: TWO TABLETS 3 TIMES DAILY, PRN
     Route: 048
     Dates: start: 20090820, end: 20140202
  14. REFRESH TEARS LUBRICANT EYE DROPS [Concomitant]
     Indication: DRY EYE
     Dosage: 5 MG/ML 15ML, 2 DROPS THREE TIMES PRN
     Route: 061
     Dates: end: 20140202
  15. ROZEX [Concomitant]
     Indication: ROSACEA
     Dosage: UNK, BID
     Route: 061
     Dates: end: 20140202
  16. SERETIDE [Concomitant]
     Indication: ASTHMA
     Dosage: 500/50 INHALER,ONE PUFF TWICE DAILY
     Route: 055
     Dates: end: 20140202
  17. TENORMIN [Concomitant]
     Indication: HYPERTENSION
     Dosage: UNK
     Route: 048
     Dates: end: 20140202
  18. ZANIDIP [Concomitant]
     Indication: HYPERTENSION
     Dosage: 1 DF, QD
     Route: 048
     Dates: start: 20050505, end: 20140202
  19. VENTOLIN (ALBUTEROL SULFATE) [Concomitant]
     Indication: ASTHMA
     Dosage: 100 MICROG/DOSE,2 PUFFS FOUR HOURLY PRN
     Route: 055
     Dates: end: 20140202
  20. SERC (BETAHISTINE HYDROCHLORIDE) [Concomitant]
     Dosage: AS DIRECTED
  21. VENTOLIN CFC FREE INHALER [Concomitant]
     Dosage: 100MCG/DOSE 2 PUFFS 4 HRLY ,PRN

REACTIONS (4)
  - Death [Fatal]
  - Pancreatitis necrotising [Fatal]
  - Multi-organ failure [Fatal]
  - Diabetes mellitus [Fatal]
